FAERS Safety Report 19190473 (Version 9)
Quarter: 2022Q1

REPORT INFORMATION
  Report Type: Other
  Country: CA (occurrence: None)
  Receive Date: 20210428
  Receipt Date: 20220331
  Transmission Date: 20220423
  Serious: No
  Sender: FDA-Public Use
  Company Number: CA-ROCHE-2819030

PATIENT
  Age: 51 Year
  Sex: Female

DRUGS (6)
  1. OCREVUS [Suspect]
     Active Substance: OCRELIZUMAB
     Indication: Relapsing-remitting multiple sclerosis
     Dosage: 300 MG AT DAY 0 AND 14, THEN 600 MG EVERY 6 MONTH,
     Route: 042
     Dates: start: 20200617
  2. OCREVUS [Suspect]
     Active Substance: OCRELIZUMAB
     Route: 042
  3. AMLODIPINE [Concomitant]
     Active Substance: AMLODIPINE BESYLATE
     Indication: Blood pressure measurement
  4. TELMISARTAN [Concomitant]
     Active Substance: TELMISARTAN
  5. LYRICA [Concomitant]
     Active Substance: PREGABALIN
  6. BACLOFEN [Concomitant]
     Active Substance: BACLOFEN

REACTIONS (2)
  - COVID-19 [Recovered/Resolved]
  - Malaise [Recovered/Resolved]

NARRATIVE: CASE EVENT DATE: 20210317
